FAERS Safety Report 10194894 (Version 1)
Quarter: 2014Q2

REPORT INFORMATION
  Report Type: Spontaneous
  Country: US (occurrence: US)
  Receive Date: 20140526
  Receipt Date: 20140526
  Transmission Date: 20141212
  Serious: No
  Sender: FDA-Public Use
  Company Number: US-PFIZER INC-2014140918

PATIENT
  Age: 82 Year
  Sex: Male

DRUGS (1)
  1. LYRICA [Suspect]
     Dosage: UNK
     Dates: start: 201405

REACTIONS (4)
  - Intraocular pressure increased [Unknown]
  - Vision blurred [Unknown]
  - Cataract [Unknown]
  - Hypoacusis [Unknown]
